FAERS Safety Report 5679556-7 (Version None)
Quarter: 2008Q1

REPORT INFORMATION
  Report Type: 
  Country: None (occurrence: None)
  Receive Date: 20080325
  Receipt Date: 20080313
  Transmission Date: 20080703
  Serious: Yes (Other)
  Sender: FDA-Public Use
  Company Number: GB-PFIZER INC-2008023989

PATIENT
  Sex: Male

DRUGS (1)
  1. CABERGOLINE [Suspect]
     Route: 048

REACTIONS (1)
  - DYSPHAGIA [None]
